FAERS Safety Report 18484036 (Version 4)
Quarter: 2024Q4

REPORT INFORMATION
  Report Type: Spontaneous
  Country: US (occurrence: US)
  Receive Date: 20201110
  Receipt Date: 20241201
  Transmission Date: 20250115
  Serious: Yes (Death, Life-Threatening, Hospitalization, Other)
  Sender: AUROBINDO
  Company Number: US-MLMSERVICE-20201023-2546731-1

PATIENT
  Age: 44 Year
  Sex: Female
  Weight: 70.2 kg

DRUGS (2)
  1. CARBOPLATIN [Suspect]
     Active Substance: CARBOPLATIN
     Indication: Cervix carcinoma stage III
     Dosage: 220 MILLIGRAM, CYCLICAL
     Route: 042
     Dates: start: 20191010
  2. CISPLATIN [Suspect]
     Active Substance: CISPLATIN
     Indication: Cervix carcinoma stage III
     Dosage: 40 MILLIGRAM/SQ. METER, CYCLICAL, 3 CYCLES
     Route: 042

REACTIONS (14)
  - Cardiac arrest [Fatal]
  - Hepatitis B reactivation [Fatal]
  - Acute hepatic failure [Fatal]
  - Coagulopathy [Fatal]
  - Metabolic acidosis [Fatal]
  - Ventricular tachycardia [Fatal]
  - Hypoglycaemia [Fatal]
  - Encephalopathy [Fatal]
  - Hypovolaemic shock [Fatal]
  - Deep vein thrombosis [Unknown]
  - Cytopenia [Unknown]
  - Ototoxicity [Unknown]
  - Mental status changes [Not Recovered/Not Resolved]
  - Pulmonary embolism [Unknown]

NARRATIVE: CASE EVENT DATE: 20190101
